FAERS Safety Report 4750097-4 (Version None)
Quarter: 2005Q3

REPORT INFORMATION
  Report Type: 
  Country: None (occurrence: None)
  Receive Date: 20050822
  Receipt Date: 20050804
  Transmission Date: 20060218
  Serious: Yes (Death, Hospitalization)
  Sender: FDA-Public Use
  Company Number: 2005-01591

PATIENT
  Age: 70 Year
  Sex: Female
  Weight: 59 kg

DRUGS (27)
  1. VELCADE [Suspect]
     Indication: MULTIPLE MYELOMA
     Dosage: 1.30 MG/M2, 2/WEEK, INTRAVENOUS
     Route: 042
     Dates: start: 20050603, end: 20050718
  2. DOXIL [Suspect]
     Indication: MULTIPLE MYELOMA
     Dosage: 30.00 MG/M2, Q3WEEKS, INTRAVENOUS
     Route: 042
     Dates: start: 20050606, end: 20050627
  3. ENOXAPARIN SODIUM [Concomitant]
  4. OXYGEN [Concomitant]
  5. ALBUTEROL [Concomitant]
  6. ANTICOAGULANT CITRATE DEXTROSE [Concomitant]
  7. ANALGESICS [Concomitant]
  8. ANTIBIOTICS [Concomitant]
  9. ZOLEDRONIC ACID [Concomitant]
  10. METOCLOPRAMIDE [Concomitant]
  11. TROPISETRON [Concomitant]
  12. PARACETAMOL [Concomitant]
  13. GENTAMICIN [Concomitant]
  14. SULFAMETHOXAZOLE/TRIMETHOPRIM ^DAK^ (SULFAMETHOXAZOLE, TRIMETHOPRIM) [Concomitant]
  15. OXYCODONE [Concomitant]
  16. ALUMINUM W/MAGNESIUM HYDROXIDE/SIMETICONE/ (MAGNESIUM HYDROXIDE, SIMET [Concomitant]
  17. CALCIUM CHLORIDE (CALCIUM CHLORIDE DIHYDRATE) [Concomitant]
  18. PHOSPHATE-SANDOZ (SODIUM BICARBONATE, SODIUM PHOSPHATE MONOBASIC (ANHY [Concomitant]
  19. POTASSIUM CHLORIDE [Concomitant]
  20. RABEPRAZOLE SODIUM [Concomitant]
  21. CEPHALEXIN [Concomitant]
  22. CEFTRIAXONE [Concomitant]
  23. AMOXICILLIN TRIHYDRATE [Concomitant]
  24. SODIUM CITRATE [Concomitant]
  25. CODEINE [Concomitant]
  26. TEMAZEPAM [Concomitant]
  27. WARFARIN SODIUM [Concomitant]

REACTIONS (15)
  - BLOOD CREATINE PHOSPHOKINASE INCREASED [None]
  - CHEST PAIN [None]
  - CONFUSIONAL STATE [None]
  - DIARRHOEA [None]
  - DILATATION ATRIAL [None]
  - DILATATION VENTRICULAR [None]
  - ECHOCARDIOGRAM ABNORMAL [None]
  - ELECTROCARDIOGRAM T WAVE INVERSION [None]
  - NAUSEA [None]
  - PALLOR [None]
  - PLEURAL EFFUSION [None]
  - PULMONARY HYPERTENSION [None]
  - TRICUSPID VALVE INCOMPETENCE [None]
  - URINARY TRACT INFECTION [None]
  - VENTRICULAR HYPOKINESIA [None]
